FAERS Safety Report 5934402-9 (Version None)
Quarter: 2008Q4

REPORT INFORMATION
  Report Type: 
  Country: None (occurrence: None)
  Receive Date: 20081029
  Receipt Date: 20081024
  Transmission Date: 20090506
  Serious: Yes (Death, Other)
  Sender: FDA-Public Use
  Company Number: PHHY2008SI25814

PATIENT
  Sex: Female

DRUGS (4)
  1. LESCOL XL [Suspect]
  2. ASPIRIN [Concomitant]
     Dosage: 100 MG
  3. TRITACE [Concomitant]
     Dosage: 5 MG, Q12H
  4. LANITOP [Concomitant]

REACTIONS (2)
  - DEATH [None]
  - PERCUTANEOUS CORONARY INTERVENTION [None]
